FAERS Safety Report 6229672-6 (Version None)
Quarter: 2009Q2

REPORT INFORMATION
  Report Type: 
  Country: None (occurrence: None)
  Receive Date: 20090615
  Receipt Date: 20090603
  Transmission Date: 20091009
  Serious: Yes (Other)
  Sender: FDA-Public Use
  Company Number: CA-AMGEN-KDL348962

PATIENT
  Sex: Female
  Weight: 59 kg

DRUGS (9)
  1. ENBREL [Suspect]
     Indication: JUVENILE ARTHRITIS
     Route: 058
     Dates: start: 20070720, end: 20090220
  2. METHOTREXATE [Concomitant]
     Dates: start: 19950101
  3. DETROL [Concomitant]
  4. NEXIUM [Concomitant]
  5. ELMIRON [Concomitant]
  6. METOCLOPRAMIDE [Concomitant]
  7. CELEBREX [Concomitant]
  8. TRAMADOL HCL [Concomitant]
  9. UNSPECIFIED MEDICATION [Concomitant]

REACTIONS (1)
  - IRITIS [None]
